FAERS Safety Report 17456063 (Version 1)
Quarter: 2020Q1

REPORT INFORMATION
  Report Type: Spontaneous
  Country: US (occurrence: US)
  Receive Date: 20200225
  Receipt Date: 20200225
  Transmission Date: 20200409
  Serious: No
  Sender: FDA-Public Use
  Company Number: None

PATIENT
  Age: 78 Year
  Sex: Male

DRUGS (3)
  1. CEFEPIME [Suspect]
     Active Substance: CEFEPIME HYDROCHLORIDE
     Indication: LIMB INJURY
     Route: 042
     Dates: start: 20200210, end: 20200217
  2. METRONIDAZOLE. [Suspect]
     Active Substance: METRONIDAZOLE
  3. CEFEPIME [Suspect]
     Active Substance: CEFEPIME HYDROCHLORIDE
     Indication: WOUND
     Route: 042
     Dates: start: 20200210, end: 20200217

REACTIONS (1)
  - Eosinophil percentage increased [None]

NARRATIVE: CASE EVENT DATE: 20200217
